FAERS Safety Report 14200707 (Version 2)
Quarter: 2017Q4

REPORT INFORMATION
  Report Type: Spontaneous
  Country: US (occurrence: US)
  Receive Date: 20171117
  Receipt Date: 20171215
  Transmission Date: 20180321
  Serious: Yes (Other)
  Sender: FDA-Public Use
  Company Number: US-NOVOPROD-536973

PATIENT
  Age: 70 Year
  Sex: Male

DRUGS (5)
  1. LEVEMIR [Suspect]
     Active Substance: INSULIN DETEMIR
     Dosage: 20 U, QD IN PM PLUS SLIDING SCALE
     Route: 058
     Dates: start: 20170320
  2. LEVEMIR [Suspect]
     Active Substance: INSULIN DETEMIR
     Indication: TYPE 2 DIABETES MELLITUS
     Dosage: 35 U, QD IN PM
     Route: 058
     Dates: start: 2016, end: 20170319
  3. NOVOLOG [Suspect]
     Active Substance: INSULIN ASPART
     Indication: TYPE 2 DIABETES MELLITUS
     Dosage: 10 U, BID
     Route: 058
     Dates: start: 2016, end: 20170319
  4. LITHIUM. [Concomitant]
     Active Substance: LITHIUM
     Indication: BIPOLAR DISORDER
     Route: 048
  5. NOVOLOG [Suspect]
     Active Substance: INSULIN ASPART
     Dosage: 10 U, TID
     Route: 058
     Dates: start: 20170320

REACTIONS (2)
  - Paraesthesia [Recovered/Resolved]
  - Blood glucose increased [Recovered/Resolved]

NARRATIVE: CASE EVENT DATE: 20170310
